FAERS Safety Report 12793670 (Version 1)
Quarter: 2016Q3

REPORT INFORMATION
  Report Type: Spontaneous
  Country: US (occurrence: US)
  Receive Date: 20160929
  Receipt Date: 20160929
  Transmission Date: 20161109
  Serious: No
  Sender: FDA-Public Use
  Company Number: US-JNJFOC-20160906711

PATIENT
  Sex: Male
  Weight: 113.4 kg

DRUGS (4)
  1. INVEGA SUSTENNA [Suspect]
     Active Substance: PALIPERIDONE PALMITATE
     Indication: SCHIZOPHRENIA
     Route: 030
     Dates: start: 201604
  2. INVEGA SUSTENNA [Suspect]
     Active Substance: PALIPERIDONE PALMITATE
     Indication: SCHIZOPHRENIA
     Route: 030
     Dates: start: 2016, end: 201608
  3. INVEGA [Suspect]
     Active Substance: PALIPERIDONE
     Indication: SCHIZOPHRENIA
     Route: 048
     Dates: end: 201604
  4. INVEGA SUSTENNA [Suspect]
     Active Substance: PALIPERIDONE PALMITATE
     Indication: SCHIZOPHRENIA
     Route: 030
     Dates: start: 201608

REACTIONS (11)
  - Depression [Unknown]
  - Disturbance in social behaviour [Unknown]
  - Apathy [Unknown]
  - Amnesia [Unknown]
  - Hallucination, auditory [Unknown]
  - Mental disorder [Unknown]
  - Gait disturbance [Unknown]
  - Lethargy [Unknown]
  - Drug ineffective [Unknown]
  - Weight increased [Unknown]
  - Staring [Unknown]

NARRATIVE: CASE EVENT DATE: 2016
